FAERS Safety Report 16260360 (Version 1)
Quarter: 2019Q2

REPORT INFORMATION
  Report Type: Spontaneous
  Country: US (occurrence: US)
  Receive Date: 20190326
  Receipt Date: 20190326
  Transmission Date: 20190711
  Serious: Yes (Hospitalization)
  Sender: FDA-Public Use
  Company Number: None

PATIENT
  Age: 66 Year
  Sex: Male

DRUGS (1)
  1. ASPIRIN. [Suspect]
     Active Substance: ASPIRIN
     Indication: THROMBOSIS PROPHYLAXIS
     Route: 048
     Dates: start: 20091207, end: 20180822

REACTIONS (6)
  - Cough [None]
  - Wheezing [None]
  - Hypoxia [None]
  - Asthma [None]
  - Fibrin D dimer increased [None]
  - Aspirin-exacerbated respiratory disease [None]

NARRATIVE: CASE EVENT DATE: 20180819
